FAERS Safety Report 5777885-X (Version None)
Quarter: 2008Q2

REPORT INFORMATION
  Report Type: 
  Country: None (occurrence: None)
  Receive Date: 20080618
  Receipt Date: 20080606
  Transmission Date: 20081010
  Serious: Yes (Death, Other)
  Sender: FDA-Public Use
  Company Number: DE-GILEAD-2008-0016070

PATIENT
  Sex: Male

DRUGS (5)
  1. TRUVADA [Suspect]
  2. SUSTIVA [Concomitant]
  3. PANTOPRAZOLE SODIUM [Concomitant]
  4. BISOPROLOL FUMARATE [Concomitant]
  5. DURAGESIC-100 [Concomitant]

REACTIONS (2)
  - ACUTE MYELOID LEUKAEMIA [None]
  - MYELODYSPLASTIC SYNDROME [None]
